FAERS Safety Report 5544001-9 (Version None)
Quarter: 2007Q4

REPORT INFORMATION
  Report Type: 
  Country: None (occurrence: None)
  Receive Date: 20071210
  Receipt Date: 20061120
  Transmission Date: 20080405
  Serious: No
  Sender: FDA-Public Use
  Company Number: US-AMGEN-KDL201000

PATIENT
  Sex: Male

DRUGS (3)
  1. ENBREL [Suspect]
     Indication: RHEUMATOID ARTHRITIS
     Route: 058
     Dates: start: 20001001
  2. ENBREL [Suspect]
     Indication: OSTEOARTHRITIS
  3. ARAVA [Concomitant]
     Dates: start: 20030101

REACTIONS (6)
  - ERYTHEMA [None]
  - INJECTION SITE IRRITATION [None]
  - PAIN [None]
  - PROSTATIC DISORDER [None]
  - PRURITUS [None]
  - RASH [None]
